FAERS Safety Report 17283702 (Version 1)
Quarter: 2020Q1

REPORT INFORMATION
  Report Type: Spontaneous
  Country: PL (occurrence: PL)
  Receive Date: 20200117
  Receipt Date: 20200117
  Transmission Date: 20200409
  Serious: Yes (Other)
  Sender: FDA-Public Use
  Company Number: PL-PFIZER INC-2020015480

PATIENT
  Age: 35 Year
  Sex: Male

DRUGS (8)
  1. ZOLPIDEM [Suspect]
     Active Substance: ZOLPIDEM TARTRATE
     Dosage: 10 MG, 1X/DAY, QD (NIGHT ON ADHOC BASIS)
  2. PREGABALIN. [Suspect]
     Active Substance: PREGABALIN
     Dosage: 300 MG, 1X/DAY, QD (2 X 150 MG / DAY)
  3. ESCITALOPRAM [Suspect]
     Active Substance: ESCITALOPRAM OXALATE
     Dosage: 20 MG, 1X/DAY, QD
  4. ESCITALOPRAM [Suspect]
     Active Substance: ESCITALOPRAM OXALATE
     Dosage: 10 MG, 1X/DAY, QD
  5. ESCITALOPRAM [Suspect]
     Active Substance: ESCITALOPRAM OXALATE
     Dosage: 15 MG, 1X/DAY, QD
  6. PREGABALIN. [Suspect]
     Active Substance: PREGABALIN
     Indication: ANXIETY DISORDER
     Dosage: 150 MG, 1X/DAY, (2 X 75 MG )
  7. ESCITALOPRAM [Suspect]
     Active Substance: ESCITALOPRAM OXALATE
     Dosage: 5 MG, 1X/DAY, QD
  8. TRAZODONE [Suspect]
     Active Substance: TRAZODONE HYDROCHLORIDE
     Dosage: 50 MG, UNK

REACTIONS (24)
  - Impaired work ability [Recovered/Resolved]
  - Asthenia [Unknown]
  - Decreased appetite [Unknown]
  - Depressed mood [Recovered/Resolved]
  - Persistent depressive disorder [Unknown]
  - Somatic symptom disorder [Unknown]
  - Anxiety [Unknown]
  - Tremor [Unknown]
  - Stress at work [Unknown]
  - Palpitations [Unknown]
  - Ejaculation disorder [Unknown]
  - Headache [Unknown]
  - Blood pressure increased [Unknown]
  - Chest pain [Unknown]
  - Hypertonia [Unknown]
  - Dizziness [Unknown]
  - Emotional disorder [Unknown]
  - Dyspnoea [Unknown]
  - Constipation [Unknown]
  - Dry mouth [Unknown]
  - Erectile dysfunction [Unknown]
  - Nausea [Unknown]
  - Hyperhidrosis [Unknown]
  - Somnolence [Unknown]
